FAERS Safety Report 7190775-3 (Version None)
Quarter: 2010Q4

REPORT INFORMATION
  Report Type: 
  Country: None (occurrence: None)
  Receive Date: 20101223
  Receipt Date: 20101215
  Transmission Date: 20110411
  Serious: Yes (Hospitalization)
  Sender: FDA-Public Use
  Company Number: GB-GENZYME-FABR-1001674

PATIENT

DRUGS (7)
  1. FABRAZYME [Suspect]
     Indication: FABRY'S DISEASE
     Dosage: 35 MG, Q2W
     Route: 042
  2. FABRAZYME [Suspect]
     Dosage: 70 MG, Q2W
     Route: 042
     Dates: start: 20031201
  3. ATENOLOL [Concomitant]
     Indication: CARDIAC DISORDER
     Dosage: 50 MG, UNK
  4. SIMVASTATIN [Concomitant]
     Indication: CARDIAC DISORDER
     Dosage: 40 MG, UNK
  5. VALSARTAN [Concomitant]
     Indication: CARDIAC DISORDER
     Dosage: 160 MG, UNK
  6. BECLOMETHASONE DIPROPIONATE [Concomitant]
     Indication: RESPIRATORY DISORDER
     Dosage: 2 PUFFS
  7. ALLOPURINOL [Concomitant]
     Indication: GOUT
     Dosage: 100 MG, UNK

REACTIONS (1)
  - UTERINE PROLAPSE [None]
